FAERS Safety Report 7301504-4 (Version None)
Quarter: 2011Q1

REPORT INFORMATION
  Report Type: 
  Country: None (occurrence: None)
  Receive Date: 20110218
  Receipt Date: 20100920
  Transmission Date: 20110831
  Serious: Yes (Other)
  Sender: FDA-Public Use
  Company Number: US-BRISTOL-MYERS SQUIBB COMPANY-15296270

PATIENT
  Age: 30 Year
  Sex: Female

DRUGS (1)
  1. KENALOG [Suspect]
     Indication: HYPERSENSITIVITY
     Dates: start: 20091201

REACTIONS (13)
  - ALOPECIA [None]
  - IRRITABILITY [None]
  - MENSTRUATION IRREGULAR [None]
  - NAUSEA [None]
  - DISTURBANCE IN ATTENTION [None]
  - MIGRAINE [None]
  - HEADACHE [None]
  - DEPRESSION [None]
  - MOOD SWINGS [None]
  - INFLUENZA LIKE ILLNESS [None]
  - ABDOMINAL PAIN [None]
  - ANXIETY [None]
  - ARTHRALGIA [None]
